FAERS Safety Report 5887635-4 (Version None)
Quarter: 2008Q3

REPORT INFORMATION
  Report Type: 
  Country: None (occurrence: None)
  Receive Date: 20080917
  Receipt Date: 20080917
  Transmission Date: 20090109
  Serious: Yes (Other)
  Sender: FDA-Public Use
  Company Number: None

PATIENT
  Age: 3 Year
  Sex: Female
  Weight: 14.0615 kg

DRUGS (1)
  1. SULFAMETHOXAZOLE W/TMP SUSHPHIT (GENERIC - BACTRIM SUSPENSION) [Suspect]
     Indication: URINARY TRACT INFECTION
     Dosage: 1 1/2 TSP. TWICE DAILY 10 DAYS ORALLY 047 (180 ML)
     Route: 048
     Dates: start: 20070810, end: 20070820

REACTIONS (6)
  - DIARRHOEA [None]
  - EYE IRRITATION [None]
  - HEADACHE [None]
  - OCULAR HYPERAEMIA [None]
  - PYREXIA [None]
  - RASH GENERALISED [None]
